FAERS Safety Report 5206175-9 (Version None)
Quarter: 2007Q1

REPORT INFORMATION
  Report Type: 
  Country: None (occurrence: None)
  Receive Date: 20070109
  Receipt Date: 20070108
  Transmission Date: 20070707
  Serious: Yes (Hospitalization)
  Sender: FDA-Public Use
  Company Number: 231057

PATIENT
  Sex: Male

DRUGS (2)
  1. AVASTIN [Suspect]
     Indication: COLORECTAL CANCER METASTATIC
     Dosage: INTRAVENOUS
     Route: 042
  2. CHEMOTHERAPY (ANTINEOPLASTIC AGENT) [Concomitant]

REACTIONS (4)
  - NECROSIS [None]
  - PAIN [None]
  - SCROTAL OEDEMA [None]
  - THROMBOSIS [None]
